FAERS Safety Report 8129725-1 (Version None)
Quarter: 2012Q1

REPORT INFORMATION
  Report Type: 
  Country: None (occurrence: None)
  Receive Date: 20120210
  Receipt Date: 20120209
  Transmission Date: 20120608
  Serious: Yes (Death, Hospitalization)
  Sender: FDA-Public Use
  Company Number: US-B.I. PHARMACEUTICALS,INC./RIDGEFIELD-2011-BP-27608BP

PATIENT
  Sex: Female
  Weight: 84.36 kg

DRUGS (9)
  1. METOCLOPRAMIDE [Concomitant]
     Dosage: 50 MG
  2. PRADAXA [Suspect]
     Indication: AORTIC VALVE DISEASE
  3. PROTONIX [Concomitant]
     Dosage: 40 MG
  4. PRADAXA [Suspect]
     Indication: ATRIAL FIBRILLATION
     Dosage: 300 MG
     Dates: start: 20110701, end: 20111001
  5. PRADAXA [Suspect]
     Indication: MITRAL VALVE PROLAPSE
  6. PLAVIX [Concomitant]
  7. VASOTEC [Concomitant]
  8. COLACE [Concomitant]
     Dates: end: 20111001
  9. NASONEX [Concomitant]
     Dates: end: 20111001

REACTIONS (1)
  - GASTROINTESTINAL HAEMORRHAGE [None]
